FAERS Safety Report 10050043 (Version 2)
Quarter: 2014Q2

REPORT INFORMATION
  Report Type: Spontaneous
  Country: JP (occurrence: JP)
  Receive Date: 20140401
  Receipt Date: 20140401
  Transmission Date: 20141212
  Serious: Yes (Other)
  Sender: FDA-Public Use
  Company Number: JP-PFIZER INC-2013369437

PATIENT
  Age: 39 Year
  Sex: Female

DRUGS (2)
  1. LYRICA [Suspect]
     Dosage: 100 MG (25 MG X 4 CAPSULES), DAILY
     Route: 048
     Dates: start: 20131209, end: 20131216
  2. LYRICA [Suspect]
     Dosage: 150 MG (75 MG X 2 CAPSULES), DAILY
     Route: 048
     Dates: start: 20131217, end: 20131220

REACTIONS (6)
  - Angina pectoris [Recovered/Resolved]
  - Chest pain [Recovered/Resolved]
  - Dyspnoea [Recovered/Resolved]
  - Abdominal pain upper [Recovered/Resolved]
  - Cough [Recovered/Resolved]
  - Respiratory disorder [Recovered/Resolved]
